FAERS Safety Report 6712330-9 (Version None)
Quarter: 2010Q2

REPORT INFORMATION
  Report Type: 
  Country: None (occurrence: None)
  Receive Date: 20100505
  Receipt Date: 20100428
  Transmission Date: 20101027
  Serious: Yes (Hospitalization)
  Sender: FDA-Public Use
  Company Number: US-GILEAD-2010-0028364

PATIENT
  Sex: Male
  Weight: 72.64 kg

DRUGS (8)
  1. LETAIRIS [Suspect]
     Indication: PULMONARY ARTERIAL HYPERTENSION
     Route: 048
     Dates: start: 20081208
  2. OXYGEN [Concomitant]
  3. FUROSEMIDE [Concomitant]
  4. REMODULIN [Concomitant]
  5. ALDACTONE [Concomitant]
  6. ADCIRCA [Concomitant]
  7. TYLENOL-500 [Concomitant]
  8. MAGOX [Concomitant]

REACTIONS (3)
  - FLUID OVERLOAD [None]
  - RENAL FAILURE ACUTE [None]
  - RIGHT VENTRICULAR FAILURE [None]
